FAERS Safety Report 7238827-3 (Version None)
Quarter: 2011Q1

REPORT INFORMATION
  Report Type: 
  Country: None (occurrence: None)
  Receive Date: 20110121
  Receipt Date: 20110110
  Transmission Date: 20110831
  Serious: Yes (Other)
  Sender: FDA-Public Use
  Company Number: PHHY2011MX02832

PATIENT
  Sex: Female

DRUGS (5)
  1. EXFORGE HCT [Suspect]
     Indication: HYPERTENSION
     Dosage: 1 DF, QD
     Dates: start: 20101119
  2. LIPITOR [Concomitant]
     Dosage: 10 MG, UNK
     Dates: start: 20101101
  3. CALCORT [Concomitant]
     Dosage: 30 MG, UNK
  4. INSULIN [Concomitant]
     Dosage: UNK
     Dates: start: 20101101
  5. CAPTOPRIL [Concomitant]

REACTIONS (4)
  - BLOOD GLUCOSE INCREASED [None]
  - VIITH NERVE PARALYSIS [None]
  - URINARY TRACT INFECTION [None]
  - HYPERTENSION [None]
